FAERS Safety Report 6382459-6 (Version None)
Quarter: 2009Q3

REPORT INFORMATION
  Report Type: 
  Country: None (occurrence: None)
  Receive Date: 20090928
  Receipt Date: 20090928
  Transmission Date: 20100115
  Serious: Yes (Hospitalization)
  Sender: FDA-Public Use
  Company Number: None

PATIENT
  Age: 56 Year
  Sex: Female
  Weight: 70.7611 kg

DRUGS (1)
  1. ADDERALL 20 [Suspect]
     Indication: ATTENTION DEFICIT/HYPERACTIVITY DISORDER
     Dosage: ONE MONTH ON THIS BATCH

REACTIONS (7)
  - ANXIETY [None]
  - CHEST PAIN [None]
  - FEELING JITTERY [None]
  - HYPERTENSION [None]
  - INSOMNIA [None]
  - PRODUCT QUALITY ISSUE [None]
  - TIC [None]
